FAERS Safety Report 8373911-2 (Version None)
Quarter: 2012Q2

REPORT INFORMATION
  Report Type: 
  Country: None (occurrence: None)
  Receive Date: 20120517
  Receipt Date: 20120502
  Transmission Date: 20120825
  Serious: Yes (Other)
  Sender: FDA-Public Use
  Company Number: 2012-001459

PATIENT
  Age: 60 Year
  Sex: Female
  Weight: 48.7 kg

DRUGS (6)
  1. ALENDRONATE SODIUM [Suspect]
     Indication: OSTEITIS DEFORMANS
     Dosage: 5 MG, ORAL
     Route: 048
     Dates: start: 20030301, end: 20040901
  2. ONEALFA (ALFACALCIDOL) [Concomitant]
  3. DIDRONEL [Suspect]
     Indication: BACK PAIN
     Dosage: ORAL
     Route: 048
     Dates: start: 20001101, end: 20030301
  4. DIDRONEL [Suspect]
     Indication: OSTEITIS DEFORMANS
     Dosage: ORAL
     Route: 048
     Dates: start: 20001101, end: 20030301
  5. DIDRONEL [Suspect]
     Indication: NECK PAIN
     Dosage: ORAL
     Route: 048
     Dates: start: 20001101, end: 20030301
  6. RISEDRONATE SODIUM [Suspect]
     Indication: OSTEITIS DEFORMANS
     Dosage: ORAL
     Route: 048
     Dates: start: 20040901, end: 20050901

REACTIONS (13)
  - GINGIVAL DISORDER [None]
  - IMPAIRED HEALING [None]
  - PRIMARY SEQUESTRUM [None]
  - BREATH ODOUR [None]
  - SINUSITIS [None]
  - DYSMORPHISM [None]
  - ORAL CAVITY FISTULA [None]
  - TENDERNESS [None]
  - OSTEONECROSIS OF JAW [None]
  - TOOTH EXTRACTION [None]
  - PAIN IN JAW [None]
  - TOOTH LOSS [None]
  - EXPOSED BONE IN JAW [None]
